FAERS Safety Report 20290228 (Version 1)
Quarter: 2022Q1

REPORT INFORMATION
  Report Type: Spontaneous
  Country: US (occurrence: None)
  Receive Date: 20220103
  Receipt Date: 20220103
  Transmission Date: 20220424
  Serious: Yes (unspecified)
  Sender: FDA-Public Use
  Company Number: None

PATIENT
  Age: 60 Year
  Sex: Male
  Weight: 64 kg

DRUGS (3)
  1. TAXOL [Suspect]
     Active Substance: PACLITAXEL
     Indication: Lung neoplasm malignant
     Dosage: FREQUENCY : ONCE;?
     Route: 041
     Dates: start: 20211230, end: 20211230
  2. Diphenhydramine IVP [Concomitant]
     Dates: start: 20211230, end: 20211230
  3. Hydrocotisone IVP [Concomitant]
     Dates: start: 20211230

REACTIONS (4)
  - Infusion related reaction [None]
  - Feeling hot [None]
  - Erythema [None]
  - Nausea [None]

NARRATIVE: CASE EVENT DATE: 20211230
